FAERS Safety Report 18419027 (Version 1)
Quarter: 2020Q4

REPORT INFORMATION
  Report Type: Spontaneous
  Country: US (occurrence: US)
  Receive Date: 20201023
  Receipt Date: 20201023
  Transmission Date: 20210114
  Serious: Yes (Hospitalization, Disabling, Other)
  Sender: FDA-Public Use
  Company Number: None

PATIENT
  Age: 31 Year
  Sex: Female
  Weight: 67.5 kg

DRUGS (6)
  1. VITAMIN C [Concomitant]
     Active Substance: ASCORBIC ACID
  2. ZINC. [Concomitant]
     Active Substance: ZINC
  3. AIMOVIG [Suspect]
     Active Substance: ERENUMAB-AOOE
     Indication: MIGRAINE
     Dosage: ?          QUANTITY:1 INJECTION(S);OTHER FREQUENCY:MONTHLY;?
     Route: 030
     Dates: start: 20200316, end: 20200417
  4. XANAX [Concomitant]
     Active Substance: ALPRAZOLAM
  5. VITAMIN D [Concomitant]
     Active Substance: VITAMIN D NOS
  6. PROPRANOLOL [Concomitant]
     Active Substance: PROPRANOLOL HYDROCHLORIDE

REACTIONS (10)
  - Insomnia [None]
  - Muscular weakness [None]
  - Headache [None]
  - Hallucination [None]
  - Dyspnoea [None]
  - Vision blurred [None]
  - Palpitations [None]
  - Anxiety [None]
  - Condition aggravated [None]
  - Cardiac disorder [None]

NARRATIVE: CASE EVENT DATE: 20200813
